FAERS Safety Report 4735889-X (Version None)
Quarter: 2005Q3

REPORT INFORMATION
  Report Type: 
  Country: None (occurrence: None)
  Receive Date: 20050805
  Receipt Date: 20050722
  Transmission Date: 20060218
  Serious: Yes (Life-Threatening, Hospitalization)
  Sender: FDA-Public Use
  Company Number: DE-AMGEN-UK143674

PATIENT

DRUGS (5)
  1. NEULASTA [Suspect]
     Indication: CHEMOTHERAPY
     Route: 065
     Dates: start: 20050617
  2. CYCLOPHOSPHAMIDE [Concomitant]
     Route: 065
     Dates: start: 20050616
  3. PREDNISONE [Concomitant]
     Route: 065
     Dates: start: 20050616
  4. VINCRISTINE [Concomitant]
     Route: 065
     Dates: start: 20050616
  5. DOXORUBICIN HCL [Concomitant]
     Route: 065
     Dates: start: 20050616

REACTIONS (2)
  - MYCOSIS FUNGOIDES [None]
  - PNEUMONIA PRIMARY ATYPICAL [None]
